FAERS Safety Report 8832314 (Version 1)
Quarter: 2012Q4

REPORT INFORMATION
  Report Type: 
  Country: CA (occurrence: CA)
  Receive Date: 20121009
  Receipt Date: 20121009
  Transmission Date: 20130627
  Serious: Yes (Other)
  Sender: FDA-Public Use
  Company Number: PHHY2009CA09028

PATIENT
  Sex: Female

DRUGS (4)
  1. SANDOSTATIN [Suspect]
     Indication: ACROMEGALY
     Dosage: UNK mg, QMO
     Route: 058
     Dates: end: 20090316
  2. SANDOSTATIN LAR [Suspect]
     Indication: ACROMEGALY
     Dates: start: 2004
  3. SANDOSTATIN LAR [Suspect]
     Dosage: 20 mg, QMO
     Route: 030
     Dates: start: 20090316
  4. SANDOSTATIN LAR [Suspect]
     Dosage: 30 mg, UNK
     Route: 030

REACTIONS (9)
  - Hormone level abnormal [Unknown]
  - Malignant neoplasm progression [Unknown]
  - Neoplasm recurrence [Unknown]
  - Fatigue [Unknown]
  - Diarrhoea [Unknown]
  - Nasopharyngitis [Unknown]
  - Headache [Unknown]
  - Nausea [Unknown]
  - Abdominal distension [Unknown]
